FAERS Safety Report 4420649-X (Version None)
Quarter: 2004Q3

REPORT INFORMATION
  Report Type: 
  Country: None (occurrence: None)
  Receive Date: 20040809
  Receipt Date: 20040415
  Transmission Date: 20050211
  Serious: No
  Sender: FDA-Public Use
  Company Number: US-GLAXOSMITHKLINE-A0507253A

PATIENT
  Age: 48 Year
  Sex: Female

DRUGS (3)
  1. PAXIL [Suspect]
     Dosage: 10MG ALTERNATE DAYS
     Route: 048
     Dates: start: 20031201
  2. VITAMIN E [Concomitant]
  3. FLOVENT [Concomitant]

REACTIONS (5)
  - CONSTIPATION [None]
  - ELECTRIC SHOCK [None]
  - LIBIDO DECREASED [None]
  - PARAESTHESIA [None]
  - WEIGHT INCREASED [None]
